FAERS Safety Report 19653968 (Version 1)
Quarter: 2021Q3

REPORT INFORMATION
  Report Type: Spontaneous
  Country: JP (occurrence: JP)
  Receive Date: 20210803
  Receipt Date: 20210803
  Transmission Date: 20211014
  Serious: No
  Sender: FDA-Public Use
  Company Number: JP-ALLERGAN-2127268US

PATIENT
  Sex: Female

DRUGS (1)
  1. ASENAPINE MALEATE ? BP [Suspect]
     Active Substance: ASENAPINE MALEATE
     Indication: PRODUCT USED FOR UNKNOWN INDICATION
     Dosage: 15 MG PER DAY (5 MG IN THE MORNING AND 10 MG IN THE EVENING)
     Route: 060

REACTIONS (7)
  - Headache [Unknown]
  - Visual acuity reduced [Unknown]
  - Dyspnoea [Unknown]
  - Choking sensation [Unknown]
  - Visual impairment [Unknown]
  - Dysuria [Unknown]
  - Cough [Unknown]
